FAERS Safety Report 24732027 (Version 1)
Quarter: 2024Q4

REPORT INFORMATION
  Report Type: Spontaneous
  Country: US (occurrence: US)
  Receive Date: 20241213
  Receipt Date: 20241213
  Transmission Date: 20250114
  Serious: No
  Sender: GLAND PHARMA LTD
  Company Number: US-GLANDPHARMA-US-2024GLNSPO01146

PATIENT
  Sex: Male

DRUGS (1)
  1. PACLITAXEL [Suspect]
     Active Substance: PACLITAXEL
     Indication: Chemotherapy
     Dosage: ONCE A WEEK FOR THREE WEEKS THEN A WEEK OFF AND THEN REPEAT
     Route: 065

REACTIONS (2)
  - Pain [Recovering/Resolving]
  - Pyrexia [Recovered/Resolved]
